FAERS Safety Report 8258385-4 (Version None)
Quarter: 2012Q2

REPORT INFORMATION
  Report Type: 
  Country: None (occurrence: None)
  Receive Date: 20120404
  Receipt Date: 20120323
  Transmission Date: 20120825
  Serious: Yes (Other)
  Sender: FDA-Public Use
  Company Number: US-COVIDIEN/TYCO HEALTHCARE/MALLINCKRODT-T201201341

PATIENT
  Sex: Female

DRUGS (12)
  1. OPTIMARK [Suspect]
     Indication: NUCLEAR MAGNETIC RESONANCE IMAGING
     Dosage: UNK, SINGLE
     Dates: start: 20020516, end: 20020516
  2. REGLAN [Concomitant]
  3. ZERIT [Concomitant]
  4. DAPSONE [Concomitant]
  5. OPTIMARK [Suspect]
     Dosage: UNK, SINGLE
     Dates: start: 20020627, end: 20020627
  6. VIRACEPT [Concomitant]
  7. EPOGEN [Concomitant]
  8. LAMIVUDINE [Concomitant]
  9. PHOSLO [Concomitant]
  10. KLONOPIN [Concomitant]
  11. OPTIMARK [Suspect]
     Dosage: UNK, SINGLE
     Dates: start: 20030417, end: 20030417
  12. PREVACID [Concomitant]

REACTIONS (32)
  - GRAFT THROMBOSIS [None]
  - AORTIC DILATATION [None]
  - GAIT DISTURBANCE [None]
  - CHOLELITHIASIS [None]
  - ASTHENIA [None]
  - BONE GIANT CELL TUMOUR BENIGN [None]
  - BASAL CELL CARCINOMA [None]
  - NEPHROGENIC SYSTEMIC FIBROSIS [None]
  - HAEMORRHOIDS [None]
  - SLEEP DISORDER [None]
  - DIARRHOEA [None]
  - HYPERPARATHYROIDISM [None]
  - LYMPHADENOPATHY [None]
  - DYSPNOEA [None]
  - PNEUMOPERITONEUM [None]
  - FALL [None]
  - DYSPNOEA EXERTIONAL [None]
  - HYPOAESTHESIA [None]
  - VENOUS INJURY [None]
  - MUSCULAR WEAKNESS [None]
  - FATIGUE [None]
  - SPLENOMEGALY [None]
  - PARAESTHESIA [None]
  - COLON ADENOMA [None]
  - OSTEOPENIA [None]
  - EXCORIATION [None]
  - SKIN PAPILLOMA [None]
  - GASTRITIS [None]
  - HYPERKALAEMIA [None]
  - PNEUMONIA [None]
  - ADNEXA UTERI MASS [None]
  - ATELECTASIS [None]
